FAERS Safety Report 7621976-5 (Version None)
Quarter: 2011Q3

REPORT INFORMATION
  Report Type: 
  Country: None (occurrence: None)
  Receive Date: 20110720
  Receipt Date: 20110412
  Transmission Date: 20111222
  Serious: Yes (Hospitalization)
  Sender: FDA-Public Use
  Company Number: IT-BAYER-2011-035311

PATIENT
  Age: 74 Year
  Sex: Male

DRUGS (2)
  1. VALSARTAN [Concomitant]
     Dosage: 1 DF, UNK
     Route: 048
  2. NAPROXEN SODIUM [Suspect]
     Indication: PAIN
     Dosage: 1100 MG, QD
     Route: 048
     Dates: start: 20110322, end: 20110401

REACTIONS (1)
  - HYPERTENSION [None]
